FAERS Safety Report 10209311 (Version 1)
Quarter: 2014Q2

REPORT INFORMATION
  Report Type: Spontaneous
  Country: US (occurrence: US)
  Receive Date: 20140530
  Receipt Date: 20140530
  Transmission Date: 20141212
  Serious: Yes (Hospitalization)
  Sender: FDA-Public Use
  Company Number: PHHY2014US064014

PATIENT
  Age: 62 Year
  Sex: Male

DRUGS (18)
  1. TRAZODONE [Suspect]
     Indication: INSOMNIA
     Dosage: 25 MG, QHS
     Route: 048
  2. TRAZODONE [Interacting]
     Dosage: UNK UKN, UNK
  3. OXYCODONE HYDROCHLORIDE [Interacting]
     Indication: PAIN
     Dosage: 10 MG, Q4H, 5 TO 10 MG
     Route: 048
  4. OXYCODONE HYDROCHLORIDE [Interacting]
     Dosage: 20 MG DAILY
     Route: 048
  5. TRAMADOL [Interacting]
     Indication: PAIN
     Dosage: 50 MG, Q6H
     Route: 048
  6. TRAMADOL [Interacting]
     Dosage: 200 MG, 150 TO 200 MG OF TRAMADOL DAILY
     Route: 048
  7. TRAMADOL [Interacting]
     Dosage: 100 MG, Q6H, 50 TO 100 MG PO Q6H PRN
     Route: 048
  8. TRAMADOL [Interacting]
     Dosage: 400 MG, UNK
     Route: 048
  9. BUPROPION [Interacting]
     Dosage: 150 MG, BID
     Route: 048
  10. HEPARIN [Concomitant]
     Dosage: 5000 U, TID
     Route: 030
  11. RANITIDINE [Concomitant]
     Dosage: 150 MG, BID
     Route: 048
  12. DOCUSATE [Concomitant]
     Dosage: 100 MG, BID
     Route: 048
  13. ACETAMINOPHEN [Concomitant]
     Dosage: 500 MG, Q8H
     Route: 048
  14. POLYETHYLENE GLYCOL [Concomitant]
     Indication: CONSTIPATION
     Dosage: 1 DF, Q4H, 3350 POWDER 17G DISSOLVED IN 4 OZ OF WATER
     Route: 048
  15. CALCIUM [Concomitant]
     Dosage: 250 MG, UNK
  16. MULTIVITAMIN//VITAMINS NOS [Concomitant]
     Dosage: 125 U DAILY
     Route: 048
  17. THIAMINE [Concomitant]
     Dosage: 100 MG DAILY
     Route: 048
  18. FOLATE [Concomitant]
     Dosage: 1 MG DAILY
     Route: 048

REACTIONS (31)
  - Serotonin syndrome [Recovered/Resolved]
  - Insomnia [Recovered/Resolved]
  - Confusional state [Recovered/Resolved]
  - Disorientation [Recovered/Resolved]
  - Hallucination, visual [Recovered/Resolved]
  - Anxiety [Recovered/Resolved]
  - Restlessness [Recovered/Resolved]
  - Diarrhoea [Recovered/Resolved]
  - Pyrexia [Recovered/Resolved]
  - Tachycardia [Recovered/Resolved]
  - Hypertension [Recovered/Resolved]
  - Tachypnoea [Recovered/Resolved]
  - Consciousness fluctuating [Recovered/Resolved]
  - Myoclonus [Recovered/Resolved]
  - Tremor [Recovered/Resolved]
  - Muscle rigidity [Recovered/Resolved]
  - Cold sweat [Recovered/Resolved]
  - Hyperhidrosis [Recovered/Resolved]
  - Mydriasis [Recovered/Resolved]
  - Dysarthria [Recovered/Resolved]
  - Irritability [Recovered/Resolved]
  - Dissociation [Recovered/Resolved]
  - Disturbance in attention [Recovered/Resolved]
  - Urinary incontinence [Recovered/Resolved]
  - Leukocytosis [Recovered/Resolved]
  - Hyponatraemia [Recovered/Resolved]
  - Blood creatine phosphokinase increased [Recovered/Resolved]
  - Blood urea increased [Recovered/Resolved]
  - Anaemia macrocytic [Recovered/Resolved]
  - Pain [Recovered/Resolved]
  - Drug interaction [Unknown]
